FAERS Safety Report 20884232 (Version 2)
Quarter: 2022Q2

REPORT INFORMATION
  Report Type: Spontaneous
  Country: CA (occurrence: CA)
  Receive Date: 20220527
  Receipt Date: 20220624
  Transmission Date: 20220720
  Serious: Yes (Other)
  Sender: FDA-Public Use
  Company Number: CA-PFIZER INC-202101752002

PATIENT
  Age: 52 Year
  Sex: Female
  Weight: 93 kg

DRUGS (1)
  1. RUXIENCE [Suspect]
     Active Substance: RITUXIMAB-PVVR
     Indication: Multiple sclerosis
     Dosage: 1000 MG, EVERY 6 MONTHS
     Route: 042
     Dates: start: 20220131

REACTIONS (7)
  - Alanine aminotransferase increased [Unknown]
  - Off label use [Unknown]
  - Gamma-glutamyltransferase increased [Unknown]
  - Urine leukocyte esterase positive [Unknown]
  - Lymphocyte count decreased [Unknown]
  - Liver function test increased [Unknown]
  - White blood cells urine positive [Unknown]

NARRATIVE: CASE EVENT DATE: 20220422
